FAERS Safety Report 5887145-4 (Version None)
Quarter: 2008Q3

REPORT INFORMATION
  Report Type: 
  Country: None (occurrence: None)
  Receive Date: 20080917
  Receipt Date: 20080912
  Transmission Date: 20090109
  Serious: Yes (Hospitalization, Other)
  Sender: FDA-Public Use
  Company Number: US-MERCK-0803USA04671

PATIENT
  Age: 82 Year
  Sex: Female

DRUGS (2)
  1. FOSAMAX [Suspect]
     Indication: OSTEOPOROSIS
     Route: 048
     Dates: start: 20030101, end: 20040101
  2. BONIVA [Suspect]
     Indication: OSTEOPOROSIS
     Route: 065
     Dates: start: 20041206, end: 20050729

REACTIONS (28)
  - ANXIETY [None]
  - ARTHROPATHY [None]
  - BRONCHITIS [None]
  - CARDIAC DISORDER [None]
  - CHRONIC OBSTRUCTIVE PULMONARY DISEASE [None]
  - CORONARY ARTERY DISEASE [None]
  - DEPRESSION [None]
  - DIVERTICULUM [None]
  - EXOSTOSIS [None]
  - GINGIVAL RECESSION [None]
  - GLAUCOMA [None]
  - HEADACHE [None]
  - HIATUS HERNIA [None]
  - LIMB INJURY [None]
  - ORAL INFECTION [None]
  - OSTEOARTHRITIS [None]
  - OSTEONECROSIS [None]
  - OSTEOPENIA [None]
  - SKIN CANCER [None]
  - SPINAL DISORDER [None]
  - STOMATITIS [None]
  - SUICIDAL IDEATION [None]
  - THYROID DISORDER [None]
  - TONGUE ULCERATION [None]
  - TOOTH FRACTURE [None]
  - TOOTH LOSS [None]
  - TRIGEMINAL NERVE DISORDER [None]
  - UTERINE DISORDER [None]
